FAERS Safety Report 11972367 (Version 1)
Quarter: 2016Q1

REPORT INFORMATION
  Report Type: Spontaneous
  Country: US (occurrence: US)
  Receive Date: 20160128
  Receipt Date: 20160128
  Transmission Date: 20160526
  Serious: No
  Sender: FDA-Public Use
  Company Number: US-GLAXOSMITHKLINE-US2016GSK009765

PATIENT
  Sex: Male

DRUGS (2)
  1. COREG CR [Suspect]
     Active Substance: CARVEDILOL PHOSPHATE
     Indication: BLOOD PRESSURE MANAGEMENT
     Dosage: UNK
     Dates: start: 2012
  2. CARVEDILOL PHOSPHATE. [Suspect]
     Active Substance: CARVEDILOL PHOSPHATE
     Indication: BLOOD PRESSURE MANAGEMENT

REACTIONS (3)
  - Dizziness [Unknown]
  - Renal disorder [Not Recovered/Not Resolved]
  - Product substitution issue [Unknown]
